FAERS Safety Report 6147328-5 (Version None)
Quarter: 2009Q2

REPORT INFORMATION
  Report Type: 
  Country: None (occurrence: None)
  Receive Date: 20090408
  Receipt Date: 20090330
  Transmission Date: 20091009
  Serious: Yes (Other)
  Sender: FDA-Public Use
  Company Number: PHHY2009FR12416

PATIENT
  Age: 56 Year
  Sex: Female

DRUGS (3)
  1. ZOMETA [Suspect]
     Indication: MULTIPLE MYELOMA
     Dosage: 1 DF, QMO
     Dates: start: 20080401, end: 20081017
  2. THALIDOMIDE [Suspect]
     Indication: MULTIPLE MYELOMA
     Dosage: 200 MG, QD
     Route: 048
     Dates: start: 20080601, end: 20081017
  3. DEXAMETHASONE [Suspect]
     Indication: MULTIPLE MYELOMA
     Dosage: 4 MG FOR 4 CONSECUTIVE DAYS/MONTH
     Route: 048
     Dates: start: 20080601

REACTIONS (3)
  - APHASIA [None]
  - HEMIANOPIA HOMONYMOUS [None]
  - TRANSIENT ISCHAEMIC ATTACK [None]
